FAERS Safety Report 6091507-2 (Version None)
Quarter: 2009Q1

REPORT INFORMATION
  Report Type: 
  Country: None (occurrence: None)
  Receive Date: 20090225
  Receipt Date: 20090216
  Transmission Date: 20090719
  Serious: Yes (Hospitalization, Disabling, Other)
  Sender: FDA-Public Use
  Company Number: IT-BAXTER-2009BH002573

PATIENT
  Age: 69 Year
  Sex: Male
  Weight: 62 kg

DRUGS (18)
  1. ENDOXAN BAXTER [Suspect]
     Indication: DIFFUSE LARGE B-CELL LYMPHOMA
     Route: 065
     Dates: start: 20081029, end: 20090123
  2. ENDOXAN BAXTER [Suspect]
     Route: 065
     Dates: start: 20081119
  3. RITUXIMAB [Suspect]
     Indication: DIFFUSE LARGE B-CELL LYMPHOMA
     Route: 065
     Dates: start: 20081029, end: 20090123
  4. RITUXIMAB [Suspect]
     Route: 065
     Dates: start: 20081119
  5. REVLIMID [Suspect]
     Indication: DIFFUSE LARGE B-CELL LYMPHOMA
     Route: 048
     Dates: start: 20081029
  6. REVLIMID [Suspect]
     Route: 048
     Dates: start: 20081119, end: 20081121
  7. REVLIMID [Suspect]
     Route: 048
     Dates: start: 20081122, end: 20081127
  8. REVLIMID [Suspect]
     Route: 048
     Dates: end: 20090123
  9. ADRIBLASTINE [Suspect]
     Indication: DRUG USE FOR UNKNOWN INDICATION
     Route: 065
     Dates: start: 20081029, end: 20090123
  10. PREDNISONE [Suspect]
     Indication: DRUG USE FOR UNKNOWN INDICATION
     Route: 065
     Dates: start: 20081029, end: 20090123
  11. ZEFFIX [Suspect]
     Indication: DRUG USE FOR UNKNOWN INDICATION
     Route: 048
     Dates: start: 20081029
  12. SENNA LEAF [Concomitant]
  13. NEULASTA [Concomitant]
  14. BACTRIM [Concomitant]
     Route: 048
     Dates: start: 20081029
  15. PYRIDOXINE HYDROCHLORIDE [Concomitant]
     Route: 048
     Dates: start: 20081126
  16. PREGABALIN [Concomitant]
     Route: 048
     Dates: start: 20081126
  17. SPORANOX [Concomitant]
     Route: 048
     Dates: start: 20081029
  18. ZOVIRAX [Concomitant]
     Route: 048
     Dates: start: 20081029

REACTIONS (3)
  - EXTRAVASATION [None]
  - NEUROPATHY PERIPHERAL [None]
  - PHLEBITIS [None]
